FAERS Safety Report 8244974-X (Version None)
Quarter: 2012Q1

REPORT INFORMATION
  Report Type: 
  Country: None (occurrence: None)
  Receive Date: 20120329
  Receipt Date: 20111025
  Transmission Date: 20120608
  Serious: No
  Sender: FDA-Public Use
  Company Number: US-MYLANLABS-2011S1022297

PATIENT
  Age: 46 Year
  Sex: Female

DRUGS (4)
  1. NUCYNTA [Concomitant]
  2. FENTANYL-100 [Suspect]
     Indication: BACK PAIN
     Dosage: CHANGES PATCHES Q3D
     Route: 062
     Dates: start: 20111010
  3. FENTANYL-100 [Suspect]
     Dosage: CHANGES PATCHES Q3D
     Route: 062
     Dates: end: 20111010
  4. FENTANYL-100 [Suspect]
     Route: 062

REACTIONS (15)
  - DRUG INEFFECTIVE [None]
  - DIARRHOEA HAEMORRHAGIC [None]
  - MALAISE [None]
  - VOMITING [None]
  - BACK PAIN [None]
  - FEELING ABNORMAL [None]
  - WEIGHT DECREASED [None]
  - DECREASED APPETITE [None]
  - HAEMATEMESIS [None]
  - DRUG WITHDRAWAL SYNDROME [None]
  - TREMOR [None]
  - ANXIETY [None]
  - SOMNOLENCE [None]
  - MEMORY IMPAIRMENT [None]
  - NAUSEA [None]
